FAERS Safety Report 20533875 (Version 1)
Quarter: 2022Q1

REPORT INFORMATION
  Report Type: Report from Study
  Country: CA (occurrence: CA)
  Receive Date: 20220301
  Receipt Date: 20220301
  Transmission Date: 20220423
  Serious: Yes (Hospitalization)
  Sender: FDA-Public Use
  Company Number: CA-Taiho Oncology Inc-EU-2022-00502

PATIENT
  Age: 73 Year
  Sex: Male
  Weight: 80.7 kg

DRUGS (1)
  1. LONSURF [Suspect]
     Active Substance: TIPIRACIL HYDROCHLORIDE\TRIFLURIDINE
     Indication: Colorectal cancer metastatic
     Dosage: DOSE, FREQUENCY AND CYCLE UNKNOWN.
     Route: 048
     Dates: start: 20220127

REACTIONS (5)
  - Hip fracture [Unknown]
  - Cerebrovascular accident [Unknown]
  - Dizziness [Unknown]
  - Fall [Unknown]
  - Pain [Unknown]
